FAERS Safety Report 13592657 (Version 1)
Quarter: 2017Q2

REPORT INFORMATION
  Report Type: Spontaneous
  Country: KR (occurrence: KR)
  Receive Date: 20170530
  Receipt Date: 20170530
  Transmission Date: 20170830
  Serious: Yes (Other)
  Sender: FDA-Public Use
  Company Number: PHHY2017KR078472

PATIENT
  Age: 62 Year
  Sex: Female

DRUGS (2)
  1. VOTRIENT [Suspect]
     Active Substance: PAZOPANIB HYDROCHLORIDE
     Indication: RENAL CELL CARCINOMA
     Dosage: UNK
     Route: 065
     Dates: start: 20131010
  2. AFINITOR [Suspect]
     Active Substance: EVEROLIMUS
     Indication: RENAL CELL CARCINOMA
     Dosage: UNK
     Route: 065

REACTIONS (10)
  - Gingival bleeding [Recovered/Resolved]
  - Purulent discharge [Recovered/Resolved]
  - Exposed bone in jaw [Recovered/Resolved]
  - Osteomyelitis acute [Unknown]
  - Osteonecrosis of jaw [Recovered/Resolved]
  - Gingival pain [Recovered/Resolved]
  - Mucosal haemorrhage [Recovered/Resolved]
  - Malignant neoplasm progression [Unknown]
  - Oedema mucosal [Recovered/Resolved]
  - Metastasis [Unknown]
